FAERS Safety Report 9698341 (Version 4)
Quarter: 2014Q2

REPORT INFORMATION
  Report Type: Report from Study
  Country: JP (occurrence: JP)
  Receive Date: 20131120
  Receipt Date: 20140528
  Transmission Date: 20141212
  Serious: Yes (Death, Hospitalization)
  Sender: FDA-Public Use
  Company Number: JP-SA-THYM-1002892

PATIENT
  Age: 75 Year
  Sex: Male
  Weight: 43.1 kg

DRUGS (10)
  1. THYMOGLOBULINE [Suspect]
     Indication: APLASTIC ANAEMIA
     Route: 042
     Dates: start: 20111031, end: 20111103
  2. SOLU-MEDROL [Suspect]
     Indication: CYTOKINE RELEASE SYNDROME
     Route: 065
     Dates: start: 20111031, end: 20111118
  3. METHYLPREDNISOLONE SODIUM SUCCINATE [Concomitant]
     Dosage: UNK
     Route: 042
     Dates: start: 20111031, end: 20111103
  4. CYCLOSPORINE [Concomitant]
     Indication: APLASTIC ANAEMIA
     Route: 065
     Dates: start: 20110913, end: 20111206
  5. ADONA [Concomitant]
     Indication: HAEMORRHAGE PROPHYLAXIS
     Route: 065
     Dates: start: 20110830, end: 20111206
  6. CIPROXAN [Concomitant]
     Indication: PROPHYLAXIS
     Route: 065
     Dates: start: 20111031, end: 20111206
  7. DIFLUCAN [Concomitant]
     Indication: PROPHYLAXIS
     Route: 065
     Dates: start: 20111031, end: 20111206
  8. ZOVIRAX [Concomitant]
     Indication: PROPHYLAXIS
     Route: 065
     Dates: start: 20111031, end: 20111206
  9. BAKTAR [Concomitant]
     Indication: PROPHYLAXIS
     Route: 065
     Dates: start: 20111124, end: 20111206
  10. FUNGUARD [Concomitant]
     Indication: PROPHYLAXIS
     Route: 065
     Dates: start: 20111123, end: 20111206

REACTIONS (5)
  - Cerebral haemorrhage [Fatal]
  - Cytomegalovirus infection [Not Recovered/Not Resolved]
  - Lung abscess [Not Recovered/Not Resolved]
  - Pyrexia [Recovered/Resolved]
  - Tachycardia [Recovered/Resolved]
